FAERS Safety Report 25029392 (Version 4)
Quarter: 2025Q3

REPORT INFORMATION
  Report Type: Report from Study
  Country: JP (occurrence: JP)
  Receive Date: 20250303
  Receipt Date: 20250901
  Transmission Date: 20251020
  Serious: Yes (Hospitalization, Other)
  Sender: ABBVIE
  Company Number: JP-TAKEDA-2025TJP002066

PATIENT
  Age: 73 Year
  Sex: Male

DRUGS (14)
  1. LEUPROLIDE ACETATE [Suspect]
     Active Substance: LEUPROLIDE ACETATE
     Indication: Bulbospinal muscular atrophy congenital
     Dosage: 11.25 MILLIGRAM, Q3MONTHS
     Route: 058
     Dates: start: 20230627
  2. DUTASTERIDE [Concomitant]
     Active Substance: DUTASTERIDE
     Indication: Product used for unknown indication
     Dates: start: 20240105
  3. Vitaneurin [Concomitant]
     Indication: Product used for unknown indication
  4. Silodosin od [Concomitant]
     Indication: Product used for unknown indication
  5. SENNOSIDES A AND B [Concomitant]
     Active Substance: SENNOSIDES A AND B
     Indication: Product used for unknown indication
  6. FEXOFENADINE HYDROCHLORIDE [Concomitant]
     Active Substance: FEXOFENADINE HYDROCHLORIDE
     Indication: Product used for unknown indication
     Dates: end: 20240418
  7. MAGNESIUM OXIDE [Concomitant]
     Active Substance: MAGNESIUM OXIDE
     Indication: Product used for unknown indication
     Dates: start: 20231213
  8. MINODRONIC ACID [Concomitant]
     Active Substance: MINODRONIC ACID
     Indication: Product used for unknown indication
  9. AZILSARTAN KAMEDOXOMIL [Concomitant]
     Active Substance: AZILSARTAN KAMEDOXOMIL
     Indication: Product used for unknown indication
     Dates: end: 20240822
  10. MINODRONIC ACID [Concomitant]
     Active Substance: MINODRONIC ACID
     Indication: Product used for unknown indication
  11. AMLODIPINE OROTATE [Concomitant]
     Active Substance: AMLODIPINE OROTATE
     Indication: Product used for unknown indication
     Dates: end: 20231004
  12. AZILSARTAN KAMEDOXOMIL [Concomitant]
     Active Substance: AZILSARTAN KAMEDOXOMIL
     Indication: Product used for unknown indication
     Dates: end: 20230919
  13. ACETAMINOPHEN [Concomitant]
     Active Substance: ACETAMINOPHEN
     Indication: Product used for unknown indication
  14. MAGNESIUM OXIDE [Concomitant]
     Active Substance: MAGNESIUM OXIDE
     Indication: Product used for unknown indication

REACTIONS (5)
  - Pyoderma [Recovered/Resolved]
  - Rhinitis [Recovered/Resolved]
  - Prostate cancer [Recovered/Resolved]
  - Cough variant asthma [Recovered/Resolved]
  - Dysuria [Recovered/Resolved]

NARRATIVE: CASE EVENT DATE: 20230929
